FAERS Safety Report 9115739 (Version 1)
Quarter: 2013Q1

REPORT INFORMATION
  Report Type: Report from Study
  Country: GB (occurrence: GB)
  Receive Date: 20130225
  Receipt Date: 20130225
  Transmission Date: 20140127
  Serious: Yes (Other)
  Sender: FDA-Public Use
  Company Number: GB-ASTRAZENECA-2013SE10593

PATIENT
  Age: 23998 Day
  Sex: Male
  Weight: 73.2 kg

DRUGS (12)
  1. VANDETANIB [Suspect]
     Indication: ADENOCARCINOMA PANCREAS
     Route: 048
     Dates: start: 20111207, end: 20120204
  2. VANDETANIB [Suspect]
     Indication: ADENOCARCINOMA PANCREAS
     Route: 048
     Dates: start: 20120215, end: 20120510
  3. VANDETANIB [Suspect]
     Indication: ADENOCARCINOMA PANCREAS
     Route: 048
     Dates: start: 20120425, end: 20121111
  4. GEMCITABINE [Suspect]
     Indication: ADENOCARCINOMA PANCREAS
     Route: 042
     Dates: start: 20111207
  5. GEMCITABINE [Suspect]
     Indication: ADENOCARCINOMA PANCREAS
     Route: 042
     Dates: start: 20120425
  6. GEMCITABINE [Suspect]
     Indication: ADENOCARCINOMA PANCREAS
     Route: 042
     Dates: start: 20120530, end: 20121121
  7. CREON [Concomitant]
     Indication: PANCREATIC ENZYMES
     Route: 048
     Dates: start: 20090715
  8. OMEPRAZOLE [Concomitant]
     Indication: GASTROOESOPHAGEAL REFLUX DISEASE
     Route: 048
     Dates: start: 20090715
  9. OMEPRAZOLE [Concomitant]
     Indication: DYSPEPSIA
     Route: 048
     Dates: start: 20090715
  10. AMLODIPINE [Concomitant]
     Indication: HYPERTENSION
     Route: 048
     Dates: start: 20120919
  11. IBUPROFEN [Concomitant]
     Indication: HYPERTENSION
     Route: 048
     Dates: start: 20110715
  12. CO-CODAMOL [Concomitant]
     Indication: HYPERTENSION
     Route: 048
     Dates: start: 20110715

REACTIONS (1)
  - Renal failure acute [Not Recovered/Not Resolved]
